FAERS Safety Report 14623110 (Version 2)
Quarter: 2018Q2

REPORT INFORMATION
  Report Type: Report from Study
  Country: MX (occurrence: MX)
  Receive Date: 20180311
  Receipt Date: 20180416
  Transmission Date: 20180711
  Serious: Yes (Hospitalization, Other)
  Sender: FDA-Public Use
  Company Number: PHHY2018MX038642

PATIENT
  Age: 58 Year
  Sex: Male
  Weight: 104 kg

DRUGS (3)
  1. TEGRETOL [Suspect]
     Active Substance: CARBAMAZEPINE
     Indication: EPILEPSY
     Dosage: 4 DF (2 IN THE MORNING AND 2 AT NIGHT), QD
     Route: 048
  2. FOLIC ACID. [Concomitant]
     Active Substance: FOLIC ACID
     Indication: BONE DISORDER
     Dosage: 1 DF AT NOON/ AT MIDDAY (SINCE 3 YEARS APPROXIMATELY)
     Route: 048
  3. CARBAMAZEPINE. [Concomitant]
     Active Substance: CARBAMAZEPINE
     Indication: EPILEPSY
     Dosage: 6 DF, QD (SINCE 10 YEARS)
     Route: 048

REACTIONS (12)
  - Petit mal epilepsy [Recovered/Resolved]
  - Reflux gastritis [Unknown]
  - Dyspepsia [Unknown]
  - Gastritis [Recovering/Resolving]
  - Obesity [Recovered/Resolved with Sequelae]
  - Blood urine present [Recovering/Resolving]
  - Ankylosing spondylitis [Recovering/Resolving]
  - Dizziness [Recovering/Resolving]
  - Stevens-Johnson syndrome [Recovered/Resolved]
  - Road traffic accident [Unknown]
  - Epilepsy [Unknown]
  - Hypertension [Recovering/Resolving]

NARRATIVE: CASE EVENT DATE: 20180101
